FAERS Safety Report 8538655-2 (Version None)
Quarter: 2012Q3

REPORT INFORMATION
  Report Type: 
  Country: None (occurrence: None)
  Receive Date: 20120726
  Receipt Date: 20120720
  Transmission Date: 20120928
  Serious: No
  Sender: FDA-Public Use
  Company Number: US-PFIZER INC-2012136197

PATIENT
  Sex: Female
  Weight: 45.351 kg

DRUGS (1)
  1. CLINDAMYCIN HCL [Suspect]
     Indication: ANTIBIOTIC THERAPY
     Dosage: 75MG/5ML SOLUTION AT 20 ML, 4X/DAY
     Route: 048
     Dates: start: 20120531

REACTIONS (3)
  - PRODUCT TASTE ABNORMAL [None]
  - POOR QUALITY DRUG ADMINISTERED [None]
  - PRODUCT ODOUR ABNORMAL [None]
